FAERS Safety Report 7503798-9 (Version None)
Quarter: 2011Q2

REPORT INFORMATION
  Report Type: 
  Country: None (occurrence: None)
  Receive Date: 20110518
  Receipt Date: 20110505
  Transmission Date: 20111010
  Serious: Yes (Other)
  Sender: FDA-Public Use
  Company Number: 2011MA005733

PATIENT
  Age: 16 Year
  Sex: Male

DRUGS (3)
  1. VENLAFAXINE HYDROCHLORIDE [Suspect]
     Indication: ANXIETY
     Dosage: 75 MG
  2. CITALOPRAM HYDROBROMIDE [Concomitant]
  3. FLUOXETINE HCL [Concomitant]

REACTIONS (1)
  - HYPOMANIA [None]
